FAERS Safety Report 6468218-4 (Version None)
Quarter: 2009Q4

REPORT INFORMATION
  Report Type: 
  Country: None (occurrence: None)
  Receive Date: 20091130
  Receipt Date: 20091110
  Transmission Date: 20100525
  Serious: Yes (Hospitalization)
  Sender: FDA-Public Use
  Company Number: 014943

PATIENT
  Age: 62 Year
  Sex: Female

DRUGS (11)
  1. PRIALT [Suspect]
     Indication: MUSCLE SPASMS
     Dosage: 2.083 UG, ONCE/HOUR, INTRATHECAL
     Route: 037
     Dates: start: 20080425, end: 20090701
  2. PRIALT [Suspect]
     Indication: PAIN
     Dosage: 2.083 UG, ONCE/HOUR, INTRATHECAL
     Route: 037
     Dates: start: 20080425, end: 20090701
  3. BACLOFEN [Concomitant]
  4. MORPHINE [Concomitant]
  5. CLONIDINE [Concomitant]
  6. MAGNESIUM OXIDE (MAGNESIUM OXIDE) [Concomitant]
  7. HEMOCYTE (FERROUS FUMARATE) [Concomitant]
  8. RENAGEL [Concomitant]
  9. AMARYL [Concomitant]
  10. COUMADIN [Concomitant]
  11. LISINOPRIL [Concomitant]

REACTIONS (13)
  - AGGRESSION [None]
  - ANGER [None]
  - BLOOD CREATININE INCREASED [None]
  - BLOOD GLUCOSE DECREASED [None]
  - BLOOD UREA INCREASED [None]
  - DEMENTIA [None]
  - HALLUCINATION [None]
  - HYPOTENSION [None]
  - MENTAL STATUS CHANGES [None]
  - OVERDOSE [None]
  - PARANOIA [None]
  - RESPIRATORY RATE DECREASED [None]
  - UNDERDOSE [None]
